FAERS Safety Report 5201596-2 (Version None)
Quarter: 2007Q1

REPORT INFORMATION
  Report Type: 
  Country: None (occurrence: None)
  Receive Date: 20070108
  Receipt Date: 20061227
  Transmission Date: 20070707
  Serious: Yes (Other)
  Sender: FDA-Public Use
  Company Number: JP-PFIZER INC-2007001649

PATIENT
  Age: 81 Year
  Sex: Male

DRUGS (6)
  1. CONAN [Suspect]
     Indication: HYPERTENSION
     Dosage: DAILY DOSE:10MG
     Route: 048
  2. NITOROL R [Suspect]
     Indication: ANGINA PECTORIS
     Route: 048
  3. PANALDINE [Suspect]
     Indication: CAROTID ENDARTERECTOMY
     Dosage: DAILY DOSE:200MG
     Route: 048
  4. SELBEX [Concomitant]
  5. GASTER [Concomitant]
  6. LENDORMIN [Concomitant]

REACTIONS (1)
  - TOXIC SKIN ERUPTION [None]
